FAERS Safety Report 5847041-5 (Version None)
Quarter: 2008Q3

REPORT INFORMATION
  Report Type: 
  Country: None (occurrence: None)
  Receive Date: 20080815
  Receipt Date: 20080807
  Transmission Date: 20090109
  Serious: Yes (Hospitalization)
  Sender: FDA-Public Use
  Company Number: US-GILEAD-2007-0013748

PATIENT
  Sex: Female
  Weight: 57.658 kg

DRUGS (7)
  1. AMBRISENTAN [Suspect]
     Indication: PULMONARY ARTERIAL HYPERTENSION
     Route: 048
     Dates: start: 20070924
  2. AMBRISENTAN [Suspect]
     Route: 048
     Dates: start: 20061027, end: 20070923
  3. LASIX [Concomitant]
     Dates: start: 19950101
  4. POTASSIUM CHLORIDE [Concomitant]
     Dates: start: 19950101
  5. VALIUM [Concomitant]
  6. VICODIN [Concomitant]
  7. M.V.I. [Concomitant]

REACTIONS (1)
  - PRESYNCOPE [None]
